FAERS Safety Report 5363063-5 (Version None)
Quarter: 2007Q2

REPORT INFORMATION
  Report Type: 
  Country: None (occurrence: None)
  Receive Date: 20070615
  Receipt Date: 20070601
  Transmission Date: 20071010
  Serious: Yes (Other)
  Sender: FDA-Public Use
  Company Number: 13779368

PATIENT
  Sex: Female

DRUGS (1)
  1. EMSAM [Suspect]
     Indication: DEPRESSION
     Dosage: 1/1 DAY TD
     Route: 062
     Dates: start: 20070410, end: 20070424

REACTIONS (7)
  - APPLICATION SITE PRURITUS [None]
  - APPLICATION SITE REACTION [None]
  - DRY MOUTH [None]
  - MOOD ALTERED [None]
  - MYALGIA [None]
  - SOMNOLENCE [None]
  - SUICIDAL IDEATION [None]
